FAERS Safety Report 5358392-5 (Version None)
Quarter: 2007Q2

REPORT INFORMATION
  Report Type: 
  Country: None (occurrence: None)
  Receive Date: 20070615
  Receipt Date: 20070607
  Transmission Date: 20071010
  Serious: Yes (Other)
  Sender: FDA-Public Use
  Company Number: PHEH2007US08537

PATIENT
  Age: 6 Month
  Sex: Female

DRUGS (1)
  1. ZELNORM [Suspect]
     Route: 064

REACTIONS (2)
  - CARDIOMYOPATHY [None]
  - DRUG EXPOSURE DURING PREGNANCY [None]
